FAERS Safety Report 5520365-7 (Version None)
Quarter: 2007Q4

REPORT INFORMATION
  Report Type: 
  Country: None (occurrence: None)
  Receive Date: 20071116
  Receipt Date: 20071116
  Transmission Date: 20080405
  Serious: Yes (Hospitalization)
  Sender: FDA-Public Use
  Company Number: None

PATIENT
  Sex: Male
  Weight: 67.3 kg

DRUGS (2)
  1. AMPICILLIN [Suspect]
     Indication: ENDOCARDITIS ENTEROCOCCAL
     Dosage: 12GM CONTIN. Q24HR IV
     Route: 042
     Dates: start: 20071030
  2. SODIUM CHLORIDE 0.9% [Suspect]
     Dosage: 500 ML CONTIN (DILUENT) IV
     Route: 042
     Dates: start: 20071030

REACTIONS (2)
  - BRONCHOSPASM [None]
  - MYOCARDIAL INFARCTION [None]
